FAERS Safety Report 4718692-6 (Version None)
Quarter: 2005Q3

REPORT INFORMATION
  Report Type: 
  Country: None (occurrence: None)
  Receive Date: 20050719
  Receipt Date: 20050706
  Transmission Date: 20060218
  Serious: Yes (Hospitalization)
  Sender: FDA-Public Use
  Company Number: 2005096649

PATIENT
  Age: 38 Year
  Sex: Female
  Weight: 79.3795 kg

DRUGS (4)
  1. CARBAMAZEPINE [Suspect]
     Indication: CONVULSION
  2. VALPROIC ACID [Suspect]
     Indication: CONVULSION
  3. LEVOTHYROXINE SODIUM [Concomitant]
  4. CARNITINE (CARNITINE) [Concomitant]

REACTIONS (9)
  - ADRENAL INSUFFICIENCY [None]
  - ANOREXIA [None]
  - APLASIA PURE RED CELL [None]
  - BONE MARROW DEPRESSION [None]
  - CONVULSION [None]
  - DEMENTIA [None]
  - HAEMATOTOXICITY [None]
  - PANCYTOPENIA [None]
  - WEIGHT DECREASED [None]
